FAERS Safety Report 4513534-6 (Version None)
Quarter: 2004Q4

REPORT INFORMATION
  Report Type: 
  Country: None (occurrence: None)
  Receive Date: 20041130
  Receipt Date: 20040212
  Transmission Date: 20050328
  Serious: No
  Sender: FDA-Public Use
  Company Number: US-GLAXOSMITHKLINE-A0498016A

PATIENT
  Age: 63 Year
  Sex: Male

DRUGS (4)
  1. WELLBUTRIN XL [Suspect]
     Indication: DEPRESSION
     Route: 048
     Dates: start: 20040106, end: 20040210
  2. CELEXA [Concomitant]
  3. WELLBUTRIN SR [Concomitant]
     Indication: DEPRESSION
     Route: 048
     Dates: start: 20030925, end: 20040108
  4. ATIVAN [Concomitant]

REACTIONS (3)
  - ANXIETY [None]
  - GASTRIC PERFORATION [None]
  - PALPITATIONS [None]
